FAERS Safety Report 12957353 (Version 1)
Quarter: 2016Q4

REPORT INFORMATION
  Report Type: Spontaneous
  Country: US (occurrence: US)
  Receive Date: 20161119
  Receipt Date: 20161119
  Transmission Date: 20170207
  Serious: No
  Sender: FDA-Public Use
  Company Number: US-009507513-1611USA006297

PATIENT
  Age: 32 Year
  Sex: Female
  Weight: 68.03 kg

DRUGS (1)
  1. NEXPLANON [Suspect]
     Active Substance: ETONOGESTREL
     Indication: CONTRACEPTION
     Dosage: 3 YEARS, LEFT ARM
     Dates: start: 20150107

REACTIONS (4)
  - Back pain [Unknown]
  - Abdominal discomfort [Unknown]
  - Headache [Unknown]
  - Menstruation normal [Unknown]

NARRATIVE: CASE EVENT DATE: 20161104
